FAERS Safety Report 17500891 (Version 3)
Quarter: 2020Q2

REPORT INFORMATION
  Report Type: Report from Study
  Country: None (occurrence: US)
  Receive Date: 20200305
  Receipt Date: 20200520
  Transmission Date: 20200713
  Serious: Yes (Hospitalization, Other)
  Sender: FDA-Public Use
  Company Number: US-ABBVIE-20K-163-3297666-00

PATIENT
  Age: 63 Year
  Sex: Male
  Weight: 97.61 kg

DRUGS (9)
  1. HUMIRA [Suspect]
     Active Substance: ADALIMUMAB
     Indication: RHEUMATOID ARTHRITIS
     Route: 058
     Dates: start: 20190429, end: 20200401
  2. LOSARTAN POTASSIUM. [Concomitant]
     Active Substance: LOSARTAN POTASSIUM
     Indication: HYPERTENSION
  3. MELOXICAM. [Concomitant]
     Active Substance: MELOXICAM
     Indication: BACK DISORDER
  4. HUMIRA [Suspect]
     Active Substance: ADALIMUMAB
     Indication: RHEUMATOID ARTHRITIS
     Route: 058
     Dates: start: 2018
  5. HUMIRA [Suspect]
     Active Substance: ADALIMUMAB
     Route: 058
     Dates: end: 202002
  6. ESCITALOPRAM [Concomitant]
     Active Substance: ESCITALOPRAM OXALATE
     Indication: ANXIETY
  7. PENNSAID [Concomitant]
     Active Substance: DICLOFENAC SODIUM
     Indication: ROTATOR CUFF SYNDROME
  8. TRAMADOL. [Concomitant]
     Active Substance: TRAMADOL
     Indication: ARTHRALGIA
  9. HUMIRA [Suspect]
     Active Substance: ADALIMUMAB
     Route: 058
     Dates: start: 202003, end: 2020

REACTIONS (24)
  - Colitis ulcerative [Recovering/Resolving]
  - Intestinal obstruction [Recovered/Resolved]
  - Procedural vomiting [Unknown]
  - Dysphonia [Unknown]
  - Laryngeal disorder [Unknown]
  - Joint stiffness [Unknown]
  - Pain [Unknown]
  - Pharyngeal swelling [Recovered/Resolved]
  - Aphonia [Recovering/Resolving]
  - Depression [Not Recovered/Not Resolved]
  - Anxiety [Not Recovered/Not Resolved]
  - Laryngeal pain [Unknown]
  - Gait disturbance [Unknown]
  - Arthralgia [Unknown]
  - Large intestine polyp [Recovered/Resolved]
  - Crohn^s disease [Recovered/Resolved]
  - Colon cancer [Recovered/Resolved]
  - Speech disorder [Unknown]
  - Pneumonia aspiration [Unknown]
  - Muscle strain [Unknown]
  - Weight bearing difficulty [Unknown]
  - Joint swelling [Unknown]
  - Hypoaesthesia [Not Recovered/Not Resolved]
  - Pyrexia [Recovered/Resolved]

NARRATIVE: CASE EVENT DATE: 20180728
